FAERS Safety Report 5676687-2 (Version None)
Quarter: 2008Q1

REPORT INFORMATION
  Report Type: 
  Country: None (occurrence: None)
  Receive Date: 20080318
  Receipt Date: 20080310
  Transmission Date: 20080703
  Serious: Yes (Hospitalization)
  Sender: FDA-Public Use
  Company Number: THQ2008A00475

PATIENT
  Age: 24 Year
  Sex: Female

DRUGS (1)
  1. LEUPROLIDE ACETATE [Suspect]
     Indication: UTERINE LEIOMYOMA
     Dosage: 1 DOSE 7 XPER 1 TOT;
     Dates: start: 19990101, end: 19990101

REACTIONS (1)
  - MYOMECTOMY [None]
